FAERS Safety Report 4988555-X (Version None)
Quarter: 2006Q2

REPORT INFORMATION
  Report Type: 
  Country: None (occurrence: None)
  Receive Date: 20060502
  Receipt Date: 20060426
  Transmission Date: 20061013
  Serious: Yes (Hospitalization)
  Sender: FDA-Public Use
  Company Number: FR-GLAXOSMITHKLINE-B0421412A

PATIENT
  Age: 39 Year
  Sex: Female
  Weight: 80 kg

DRUGS (7)
  1. VENTOLIN [Suspect]
     Route: 055
  2. DI ANTALVIC [Suspect]
     Route: 065
  3. SERESTA [Suspect]
     Route: 065
  4. RISPERDAL [Suspect]
     Route: 065
  5. METHADONE [Suspect]
     Route: 065
  6. ESCITALOPRAM OXALATE [Suspect]
     Route: 048
  7. CODEINE [Concomitant]
     Route: 048

REACTIONS (1)
  - DRUG ABUSER [None]
